FAERS Safety Report 6443064-6 (Version None)
Quarter: 2009Q4

REPORT INFORMATION
  Report Type: 
  Country: None (occurrence: None)
  Receive Date: 20091117
  Receipt Date: 20091110
  Transmission Date: 20100525
  Serious: Yes (Other)
  Sender: FDA-Public Use
  Company Number: DE-JNJFOC-20091102790

PATIENT
  Age: 72 Year
  Sex: Male
  Weight: 87.8 kg

DRUGS (8)
  1. REMICADE [Suspect]
     Indication: COLITIS ULCERATIVE
     Route: 042
  2. REMICADE [Suspect]
     Indication: ANKYLOSING SPONDYLITIS
     Route: 042
  3. HUMALOG [Concomitant]
  4. LANTUS [Concomitant]
  5. AMLODIPINE [Concomitant]
  6. SIMVASTATIN [Concomitant]
  7. MOXONIDIN [Concomitant]
  8. AZULFIDINE [Concomitant]
     Dosage: DOSE 2 TO 3 TIMES DAILY

REACTIONS (2)
  - RETINAL DETACHMENT [None]
  - VISUAL ACUITY REDUCED [None]
